FAERS Safety Report 5125282-2 (Version None)
Quarter: 2006Q4

REPORT INFORMATION
  Report Type: 
  Country: None (occurrence: None)
  Receive Date: 20061006
  Receipt Date: 20060926
  Transmission Date: 20070319
  Serious: Yes (Other)
  Sender: FDA-Public Use
  Company Number: 2006115119

PATIENT
  Age: 56 Year
  Sex: Female

DRUGS (4)
  1. SPIRONOLACTONE [Suspect]
     Dosage: 100 MG
  2. CATAPRES-TTS-1 [Suspect]
  3. IMDUR [Suspect]
     Dosage: 30 MG
  4. FUROSEMIDE [Suspect]
     Dosage: 80  MG

REACTIONS (2)
  - CARDIAC OPERATION [None]
  - HYPERTENSION [None]
